FAERS Safety Report 26113422 (Version 1)
Quarter: 2025Q4

REPORT INFORMATION
  Report Type: Spontaneous
  Country: US (occurrence: US)
  Receive Date: 20251202
  Receipt Date: 20251202
  Transmission Date: 20260117
  Serious: No
  Sender: ASTELLAS
  Company Number: US-ASTELLAS-2025-AER-021066

PATIENT
  Age: 68 Year
  Sex: Female

DRUGS (5)
  1. PADCEV [Suspect]
     Active Substance: ENFORTUMAB VEDOTIN-EJFV
     Indication: Bladder cancer
     Dosage: UNKNOWN FREQUENCY
     Route: 042
  2. PADCEV [Suspect]
     Active Substance: ENFORTUMAB VEDOTIN-EJFV
     Dosage: 42 MG, CYCLIC (DAY 1 AND DAY 8 Q 21 DAYS)
     Route: 042
  3. PADCEV [Suspect]
     Active Substance: ENFORTUMAB VEDOTIN-EJFV
     Dosage: 1 MG/KG WITH CYCLE #3?UNKNOWN FREQUENCY
     Route: 042
  4. PADCEV [Suspect]
     Active Substance: ENFORTUMAB VEDOTIN-EJFV
     Dosage: 0.75 MG/KG WITH CYCLE 3? DAY 8 TREATMENT
     Route: 042
     Dates: end: 20250415
  5. PEMBROLIZUMAB [Suspect]
     Active Substance: PEMBROLIZUMAB
     Indication: Bladder cancer
     Dosage: 200 MG Q 21 DAYS
     Route: 042
     Dates: start: 20240604, end: 20250415

REACTIONS (4)
  - Mouth ulceration [Recovering/Resolving]
  - Pruritus [Unknown]
  - Oral candidiasis [Unknown]
  - Rash [Unknown]
